FAERS Safety Report 21551803 (Version 2)
Quarter: 2023Q1

REPORT INFORMATION
  Report Type: Report from Study
  Country: US (occurrence: US)
  Receive Date: 20221104
  Receipt Date: 20230119
  Transmission Date: 20230417
  Serious: No
  Sender: FDA-Public Use
  Company Number: US-ABBVIE-22K-163-4306538-00

PATIENT
  Age: 22 Year
  Sex: Female

DRUGS (5)
  1. HUMIRA [Suspect]
     Active Substance: ADALIMUMAB
     Indication: Crohn^s disease
     Dosage: DAY 1
     Route: 058
     Dates: start: 20211214, end: 20211214
  2. HUMIRA [Suspect]
     Active Substance: ADALIMUMAB
     Dosage: DAY 15
     Route: 058
     Dates: start: 20211228, end: 20211228
  3. HUMIRA [Suspect]
     Active Substance: ADALIMUMAB
     Route: 058
     Dates: start: 202209
  4. HUMIRA [Suspect]
     Active Substance: ADALIMUMAB
     Dosage: DAY 29
     Route: 058
     Dates: start: 20220111, end: 202209
  5. MODERNA COVID-19 VACCINE [Concomitant]
     Active Substance: ELASOMERAN
     Indication: COVID-19 immunisation
     Dosage: TIME INTERVAL: 1 TOTAL
     Route: 030

REACTIONS (20)
  - Loss of personal independence in daily activities [Unknown]
  - Fear [Unknown]
  - Sinusitis [Recovered/Resolved]
  - Fatigue [Unknown]
  - Illness [Unknown]
  - Diarrhoea [Unknown]
  - Gastrointestinal sounds abnormal [Unknown]
  - Decreased appetite [Unknown]
  - Frequent bowel movements [Unknown]
  - Asthenia [Unknown]
  - Insomnia [Unknown]
  - Anxiety [Unknown]
  - Depressed mood [Unknown]
  - Flatulence [Not Recovered/Not Resolved]
  - Abdominal distension [Unknown]
  - Pharyngitis streptococcal [Recovered/Resolved]
  - Ear infection [Recovered/Resolved]
  - Abdominal pain [Unknown]
  - Off label use [Unknown]
  - Injection site bruising [Unknown]

NARRATIVE: CASE EVENT DATE: 20220301
